FAERS Safety Report 20175622 (Version 8)
Quarter: 2022Q4

REPORT INFORMATION
  Report Type: Spontaneous
  Country: DE (occurrence: DE)
  Receive Date: 20211213
  Receipt Date: 20221007
  Transmission Date: 20230112
  Serious: Yes (Hospitalization, Other)
  Sender: FDA-Public Use
  Company Number: None

PATIENT
  Age: 74 Year
  Sex: Male

DRUGS (29)
  1. CANDESARTAN [Suspect]
     Active Substance: CANDESARTAN
     Indication: Blood pressure abnormal
     Dosage: 32 MG, QD
     Route: 065
     Dates: end: 202102
  2. FUROSEMIDE [Suspect]
     Active Substance: FUROSEMIDE
     Indication: Fluid retention
     Dosage: 40 MG, PRN
     Route: 065
  3. DOXAZOSIN [Suspect]
     Active Substance: DOXAZOSIN MESYLATE
     Indication: Blood pressure measurement
     Dosage: 4 MG (1/2-2-2-0)
     Route: 065
  4. PANTOPRAZOLE [Suspect]
     Active Substance: PANTOPRAZOLE
     Indication: Abdominal discomfort
     Dosage: 20 MG, QD
     Route: 065
     Dates: end: 201705
  5. TAMSULOSIN [Suspect]
     Active Substance: TAMSULOSIN
     Indication: Prostate infection
     Dosage: 0.4 MG, QD
     Route: 065
  6. TACROLIMUS [Suspect]
     Active Substance: TACROLIMUS
     Indication: Transplant
     Dosage: 1 MG, Q12H (1 MG, UNKNOWN FREQ)
     Route: 065
  7. TAMSULOSIN HYDROCHLORIDE [Suspect]
     Active Substance: TAMSULOSIN HYDROCHLORIDE
     Indication: Prostate infection
     Dosage: 0.4 MG, QD
     Route: 065
  8. TORSEMIDE [Suspect]
     Active Substance: TORSEMIDE
     Indication: Product used for unknown indication
     Dosage: 0.5 DF, QD
     Route: 065
  9. VALCYTE [Suspect]
     Active Substance: VALGANCICLOVIR HYDROCHLORIDE
     Indication: Product used for unknown indication
     Dosage: 450 MG, QD
     Route: 065
     Dates: end: 20140801
  10. VALGANCICLOVIR [Suspect]
     Active Substance: VALGANCICLOVIR
     Indication: Product used for unknown indication
     Dosage: 450 MG, QD
     Route: 065
     Dates: start: 20140801, end: 20140801
  11. PROGRAF [Suspect]
     Active Substance: TACROLIMUS
     Indication: Transplant
     Dosage: 1.0 MG
     Route: 065
     Dates: end: 2018
  12. SODIUM BICARBONATE [Suspect]
     Active Substance: SODIUM BICARBONATE
     Indication: Product used for unknown indication
     Dosage: UNKNOWN
     Route: 065
  13. FERROUS GLYCINE SULFATE [Suspect]
     Active Substance: FERROUS GLYCINE SULFATE
     Indication: Product used for unknown indication
     Dosage: 100 MG, QD
     Route: 065
     Dates: end: 20150610
  14. FLUVASTATIN [Suspect]
     Active Substance: FLUVASTATIN SODIUM
     Indication: Blood cholesterol
     Dosage: UNKNOWN
     Route: 065
  15. HYGROTON [Suspect]
     Active Substance: CHLORTHALIDONE
     Indication: Blood pressure measurement
     Dosage: 0.5 DF, QD
     Route: 065
  16. CALCIUM CARBONATE\CHOLECALCIFEROL [Suspect]
     Active Substance: CALCIUM CARBONATE\CHOLECALCIFEROL
     Indication: Product used for unknown indication
     Dosage: 1 DF, BID
     Route: 065
     Dates: end: 20170729
  17. MINOXIDIL [Suspect]
     Active Substance: MINOXIDIL
     Indication: Blood pressure management
     Dosage: 2.5, TID (1-1-1)
     Route: 065
  18. MARCUMAR [Suspect]
     Active Substance: PHENPROCOUMON
     Indication: Cardiac disorder
     Dosage: 0.5 DF
     Route: 065
  19. MYFORTIC [Suspect]
     Active Substance: MYCOPHENOLATE SODIUM
     Indication: Transplant
     Dosage: 1 DF, BID
     Route: 065
  20. NITRENDIPINE [Suspect]
     Active Substance: NITRENDIPINE
     Indication: Blood pressure measurement
     Dosage: 20 MILLIGRAM, QD, 10 MG BID
     Route: 065
  21. CARVEDILOL [Suspect]
     Active Substance: CARVEDILOL
     Indication: Blood pressure measurement
     Dosage: 25 MG, QD
     Route: 065
  22. COTRIMOXAZOLE [Suspect]
     Active Substance: SULFAMETHOXAZOLE\TRIMETHOPRIM
     Indication: Product used for unknown indication
     Dosage: 480 MG
     Route: 065
     Dates: end: 20140401
  23. CHOLECALCIFEROL [Suspect]
     Active Substance: CHOLECALCIFEROL
     Indication: Product used for unknown indication
     Dosage: UNKNOWN
     Route: 065
  24. CHOLECALCIFEROL [Suspect]
     Active Substance: CHOLECALCIFEROL
     Indication: Product used for unknown indication
     Dosage: UNKNOWN
     Route: 065
  25. DIGITOXIN [Suspect]
     Active Substance: DIGITOXIN
     Indication: Cardiac disorder
     Dosage: 1 DF, QD (NOT ON SUNDAYS)
     Route: 065
  26. AMPHOTERICIN B [Suspect]
     Active Substance: AMPHOTERICIN B
     Indication: Product used for unknown indication
     Dosage: 1 DF, TID
     Route: 065
     Dates: end: 20140729
  27. ARANESP [Suspect]
     Active Substance: DARBEPOETIN ALFA
     Indication: Product used for unknown indication
     Dosage: 10 MG, QW
     Route: 065
     Dates: end: 20141210
  28. SODIUM BICARBONATE [Suspect]
     Active Substance: SODIUM BICARBONATE
     Indication: Product used for unknown indication
     Dosage: 1 G, QD
     Route: 065
  29. CANDESARTAN CILEXETIL [Suspect]
     Active Substance: CANDESARTAN CILEXETIL
     Indication: Blood pressure measurement
     Dosage: 32 MG, QD
     Route: 065
     Dates: end: 20210226

REACTIONS (69)
  - Haemorrhage [Unknown]
  - Hepatic steatosis [Unknown]
  - Haemoglobin decreased [Recovered/Resolved]
  - Diverticulum intestinal [Unknown]
  - Myalgia [Unknown]
  - Presyncope [Unknown]
  - Atrial fibrillation [Unknown]
  - Rectal prolapse [Unknown]
  - Actinic keratosis [Unknown]
  - Atrioventricular block first degree [Unknown]
  - Mean cell volume increased [Recovered/Resolved]
  - Spinal stenosis [Unknown]
  - Delayed graft function [Unknown]
  - Activated partial thromboplastin time prolonged [Unknown]
  - SARS-CoV-2 antibody test positive [Unknown]
  - Spinal osteoarthritis [Unknown]
  - Carotid arteriosclerosis [Unknown]
  - Thrombosis [Unknown]
  - Restless legs syndrome [Unknown]
  - Left ventricular hypertrophy [Unknown]
  - Blood potassium increased [Unknown]
  - Vena cava injury [Unknown]
  - Renal cyst haemorrhage [Not Recovered/Not Resolved]
  - Haemorrhoids [Unknown]
  - Vitamin D decreased [Recovered/Resolved]
  - Incorrect dose administered [Unknown]
  - Glycosylated haemoglobin increased [Unknown]
  - Basal cell carcinoma [Recovered/Resolved]
  - Chronic kidney disease [Unknown]
  - Hyperparathyroidism secondary [Unknown]
  - Pancreatic cystadenoma [Unknown]
  - Renal artery stenosis [Unknown]
  - Hepatosplenomegaly [Unknown]
  - Oedema peripheral [Unknown]
  - Vertigo [Unknown]
  - C-reactive protein increased [Unknown]
  - Arteriosclerosis [Unknown]
  - Metabolic acidosis [Unknown]
  - Dizziness [Unknown]
  - Bradycardia [Unknown]
  - Red blood cell count decreased [Recovered/Resolved]
  - Aortic dilatation [Unknown]
  - Aortic arteriosclerosis [Unknown]
  - Blood pressure fluctuation [Not Recovered/Not Resolved]
  - Benign prostatic hyperplasia [Unknown]
  - Gastrooesophageal reflux disease [Unknown]
  - Swelling [Unknown]
  - Squamous cell carcinoma of skin [Recovered/Resolved]
  - COVID-19 [Unknown]
  - Fear [Unknown]
  - Hypertension [Unknown]
  - Aortic valve incompetence [Unknown]
  - Restlessness [Unknown]
  - Pulmonary hypertension [Unknown]
  - Headache [Unknown]
  - Large intestine polyp [Unknown]
  - Atrial fibrillation [Not Recovered/Not Resolved]
  - Swelling face [Unknown]
  - Swelling of eyelid [Unknown]
  - Insomnia [Unknown]
  - Abdominal wall haemorrhage [Unknown]
  - Intervertebral disc space narrowing [Unknown]
  - Perineal cyst [Unknown]
  - Overdose [Unknown]
  - Vascular compression [Unknown]
  - Complications of transplanted kidney [Unknown]
  - Vascular anastomotic haemorrhage [Unknown]
  - Renal cyst [Unknown]
  - Drug ineffective [Unknown]

NARRATIVE: CASE EVENT DATE: 20130401
